FAERS Safety Report 5134517-1 (Version None)
Quarter: 2006Q4

REPORT INFORMATION
  Report Type: 
  Country: None (occurrence: None)
  Receive Date: 20061019
  Receipt Date: 20061002
  Transmission Date: 20070319
  Serious: Yes (Hospitalization, Other)
  Sender: FDA-Public Use
  Company Number: US200610000256

PATIENT
  Age: 46 Year
  Sex: Female

DRUGS (2)
  1. CYMBALTA [Suspect]
     Indication: PANIC DISORDER
     Dosage: 60 MG, DAILY (1/D)
     Dates: start: 20060801, end: 20060901
  2. ATIVAN [Concomitant]

REACTIONS (6)
  - ABDOMINAL PAIN [None]
  - BACK PAIN [None]
  - HEPATIC ENZYME INCREASED [None]
  - HYSTERECTOMY [None]
  - PAIN [None]
  - PRURITUS GENERALISED [None]
